FAERS Safety Report 5972764-7 (Version None)
Quarter: 2008Q4

REPORT INFORMATION
  Report Type: 
  Country: None (occurrence: None)
  Receive Date: 20081201
  Receipt Date: 20081117
  Transmission Date: 20090506
  Serious: Yes (Hospitalization, Other)
  Sender: FDA-Public Use
  Company Number: US-MERCK-0811USA01832

PATIENT
  Sex: Male
  Weight: 51 kg

DRUGS (8)
  1. ISENTRESS [Suspect]
     Indication: HIV INFECTION
     Route: 048
     Dates: start: 20070823, end: 20080208
  2. ISENTRESS [Suspect]
     Route: 048
     Dates: start: 20080416, end: 20080708
  3. TRUVADA [Concomitant]
     Indication: HIV INFECTION
     Route: 048
     Dates: start: 20070823, end: 20080208
  4. ISONIAZID [Concomitant]
     Indication: TUBERCULOSIS
     Route: 048
     Dates: start: 20080318, end: 20081104
  5. RIFAMPIN [Concomitant]
     Indication: TUBERCULOSIS
     Route: 048
     Dates: start: 20080318, end: 20080416
  6. RIFAMPIN [Concomitant]
     Route: 048
     Dates: start: 20080416, end: 20080825
  7. PYRAZINAMIDE [Concomitant]
     Indication: TUBERCULOSIS
     Route: 048
     Dates: start: 20080318, end: 20080512
  8. FLORINEF [Concomitant]
     Route: 065

REACTIONS (4)
  - DIZZINESS [None]
  - HEADACHE [None]
  - PNEUMONIA [None]
  - PYREXIA [None]
